FAERS Safety Report 13659107 (Version 1)
Quarter: 2017Q2

REPORT INFORMATION
  Report Type: Spontaneous
  Country: CA (occurrence: CA)
  Receive Date: 20170616
  Receipt Date: 20170616
  Transmission Date: 20170830
  Serious: Yes (Hospitalization, Other)
  Sender: FDA-Public Use
  Company Number: CA-JNJFOC-20170613414

PATIENT
  Age: 22 Year
  Sex: Male
  Weight: 54 kg

DRUGS (4)
  1. REMICADE [Suspect]
     Active Substance: INFLIXIMAB
     Indication: CROHN^S DISEASE
     Route: 042
  2. XARELTO [Suspect]
     Active Substance: RIVAROXABAN
     Indication: THROMBOSIS
     Route: 048
  3. ACRIVASTINE [Concomitant]
     Active Substance: ACRIVASTINE
     Indication: PREMEDICATION
     Route: 048
  4. PARACETAMOL WITH CODEINE PHOSPHATE [Concomitant]
     Active Substance: ACETAMINOPHEN\CODEINE PHOSPHATE
     Indication: PREMEDICATION
     Route: 048

REACTIONS (3)
  - Thrombosis [Unknown]
  - Intestinal resection [Unknown]
  - Pruritus [Unknown]
